FAERS Safety Report 12551847 (Version 1)
Quarter: 2016Q3

REPORT INFORMATION
  Report Type: Spontaneous
  Country: IE (occurrence: IE)
  Receive Date: 20160713
  Receipt Date: 20160713
  Transmission Date: 20161109
  Serious: Yes (Other)
  Sender: FDA-Public Use
  Company Number: IE-BAYER-2016-131840

PATIENT
  Age: 44 Year
  Sex: Male

DRUGS (2)
  1. ESOMEPRAZOLE W/NAPROXEN [Suspect]
     Active Substance: ESOMEPRAZOLE MAGNESIUM\NAPROXEN
     Indication: ABDOMINAL PAIN
  2. NAPROXEN SODIUM ({= 220 MG) [Suspect]
     Active Substance: NAPROXEN SODIUM
     Indication: ABDOMINAL PAIN

REACTIONS (5)
  - Oedema [None]
  - Vasculitic rash [Recovering/Resolving]
  - IgA nephropathy [Recovering/Resolving]
  - Liver disorder [None]
  - Inflammation [None]
